FAERS Safety Report 24882295 (Version 5)
Quarter: 2025Q3

REPORT INFORMATION
  Report Type: Spontaneous
  Country: US (occurrence: US)
  Receive Date: 20250124
  Receipt Date: 20250917
  Transmission Date: 20251021
  Serious: No
  Sender: BRISTOL-MYERS SQUIBB COMPANY
  Company Number: US-BRISTOL-MYERS SQUIBB COMPANY-2025-010770

PATIENT
  Age: 60 Year
  Sex: Female

DRUGS (5)
  1. ORENCIA [Suspect]
     Active Substance: ABATACEPT
     Indication: Rheumatoid arthritis
     Dates: start: 202106
  2. ORENCIA [Suspect]
     Active Substance: ABATACEPT
     Dates: start: 202106
  3. ORENCIA [Suspect]
     Active Substance: ABATACEPT
     Dates: start: 202106
  4. ORENCIA [Suspect]
     Active Substance: ABATACEPT
     Dates: start: 202106
  5. PANTOPRAZOLE [Concomitant]
     Active Substance: PANTOPRAZOLE
     Indication: Product used for unknown indication

REACTIONS (5)
  - Joint swelling [Unknown]
  - Arthralgia [Unknown]
  - Therapy non-responder [Unknown]
  - Pain [Unknown]
  - Rheumatoid arthritis [Not Recovered/Not Resolved]

NARRATIVE: CASE EVENT DATE: 20241201
